FAERS Safety Report 9007038 (Version 1)
Quarter: 2013Q1

REPORT INFORMATION
  Report Type: Spontaneous
  Country: US (occurrence: US)
  Receive Date: 20130110
  Receipt Date: 20130110
  Transmission Date: 20140127
  Serious: Yes (Death)
  Sender: FDA-Public Use
  Company Number: US-PFIZER INC-2013007140

PATIENT
  Age: 60 Year
  Sex: Male

DRUGS (11)
  1. ATORVASTATIN CALCIUM [Suspect]
     Dosage: UNK
  2. DEXTROMETHORPHAN HYDROBROMIDE [Suspect]
     Dosage: UNK
  3. NORTRIPTYLINE [Suspect]
     Dosage: UNK
  4. DIPHENHYDRAMINE [Suspect]
     Dosage: UNK
  5. ACETAMINOPHEN/DIPHENHYDRAMINE [Suspect]
     Dosage: UNK
  6. FEXOFENADINE [Suspect]
     Dosage: UNK
  7. ACETYLSALICYLIC ACID [Suspect]
     Dosage: UNK
  8. CLOPIDOGREL [Suspect]
     Dosage: UNK
  9. METOPROLOL [Suspect]
     Dosage: UNK
  10. AMLODIPINE/OLMESARTAN MEDOXOMIL [Suspect]
     Dosage: UNK
  11. DOXYLAMINE [Suspect]
     Dosage: UNK

REACTIONS (3)
  - Completed suicide [Fatal]
  - Cardiac arrest [Fatal]
  - Respiratory arrest [Fatal]
